FAERS Safety Report 8769988 (Version 1)
Quarter: 2012Q4

REPORT INFORMATION
  Report Type: 
  Country: US (occurrence: US)
  Receive Date: 20120904
  Receipt Date: 20120904
  Transmission Date: 20130627
  Serious: Yes (Disabling)
  Sender: FDA-Public Use
  Company Number: US-ASTELLAS-2012US007350

PATIENT
  Sex: Female
  Weight: 61 kg

DRUGS (4)
  1. PROGRAF [Suspect]
     Indication: PRODUCT USED FOR UNKNOWN INDICATION
     Dosage: 4 mg, bid
     Route: 048
     Dates: start: 20050315
  2. CELLCEPT                           /01275102/ [Concomitant]
     Indication: RENAL TRANSPLANT
     Dosage: 1000 mg, bid
     Route: 048
     Dates: start: 20050315
  3. PREDNISONE [Concomitant]
     Indication: PRODUCT USED FOR UNKNOWN INDICATION
     Dosage: 5 mg, UID/QD
     Route: 048
     Dates: start: 1990
  4. SYNTHROID [Concomitant]
     Indication: HYPOTHYROIDISM
     Dosage: 0.125 mg, UID/QD
     Route: 048
     Dates: start: 1995

REACTIONS (4)
  - Intervertebral disc degeneration [Not Recovered/Not Resolved]
  - Intervertebral disc protrusion [Not Recovered/Not Resolved]
  - Nasopharyngitis [Not Recovered/Not Resolved]
  - Vomiting [Not Recovered/Not Resolved]
